FAERS Safety Report 7208489-X (Version None)
Quarter: 2011Q1

REPORT INFORMATION
  Report Type: 
  Country: None (occurrence: None)
  Receive Date: 20110104
  Receipt Date: 20101220
  Transmission Date: 20110831
  Serious: Yes (Other)
  Sender: FDA-Public Use
  Company Number: TR-RANBAXY-2010RR-40792

PATIENT
  Age: 16 Year
  Sex: Male

DRUGS (3)
  1. CLINDAMYCIN [Suspect]
  2. AMPICILLIN [Suspect]
  3. AMIKACIN [Suspect]

REACTIONS (1)
  - ACUTE GENERALISED EXANTHEMATOUS PUSTULOSIS [None]
